FAERS Safety Report 9351576 (Version 2)
Quarter: 2013Q3

REPORT INFORMATION
  Report Type: Report from Study
  Country: TR (occurrence: TR)
  Receive Date: 20130617
  Receipt Date: 20130710
  Transmission Date: 20140515
  Serious: Yes (Death, Life-Threatening, Hospitalization)
  Sender: FDA-Public Use
  Company Number: TR-CELGENEUS-161-C5013-13061080

PATIENT
  Age: 54 Year
  Sex: Female

DRUGS (5)
  1. CC-5013 [Suspect]
     Indication: 5Q MINUS SYNDROME
     Dosage: 5 MILLIGRAM
     Route: 048
     Dates: start: 201003, end: 201304
  2. PREDNISOLONE [Concomitant]
     Indication: MYELODYSPLASTIC SYNDROME
     Dosage: 8 MILLIGRAM
     Route: 065
  3. EXJADE [Concomitant]
     Indication: HAEMOSIDEROSIS
     Dosage: 1500 MILLIGRAM
     Route: 065
  4. BELOC ZOK [Concomitant]
     Indication: HYPERTENSION
     Dosage: 50 MILLIGRAM
     Route: 065
  5. CORASPIN [Concomitant]
     Indication: HYPERTENSION
     Dosage: 100 MILLIGRAM
     Route: 065

REACTIONS (3)
  - Sepsis [Fatal]
  - Renal failure acute [Fatal]
  - Acute myeloid leukaemia [Not Recovered/Not Resolved]
